FAERS Safety Report 8251673-7 (Version None)
Quarter: 2012Q2

REPORT INFORMATION
  Report Type: 
  Country: None (occurrence: None)
  Receive Date: 20120402
  Receipt Date: 20120207
  Transmission Date: 20120825
  Serious: No
  Sender: FDA-Public Use
  Company Number: US-ABBOTT-12P-163-0902233-00

PATIENT
  Age: 76 Year
  Sex: Male
  Weight: 90.8 kg

DRUGS (2)
  1. ANDROGEL [Suspect]
     Indication: BLOOD TESTOSTERONE DECREASED
     Route: 061
     Dates: start: 20120101
  2. LEVITRA [Concomitant]
     Indication: NEUROPATHY PERIPHERAL
     Dates: start: 20120201

REACTIONS (2)
  - THERAPEUTIC RESPONSE UNEXPECTED [None]
  - HYPOAESTHESIA [None]
